FAERS Safety Report 21440327 (Version 2)
Quarter: 2022Q4

REPORT INFORMATION
  Report Type: Spontaneous
  Country: US (occurrence: US)
  Receive Date: 20221011
  Receipt Date: 20221017
  Transmission Date: 20230113
  Serious: Yes (Hospitalization, Other)
  Sender: FDA-Public Use
  Company Number: US-GLAXOSMITHKLINE-US2022GSK143997

PATIENT

DRUGS (9)
  1. BUPROPION HYDROCHLORIDE XL [Interacting]
     Active Substance: BUPROPION HYDROCHLORIDE
     Indication: Major depression
     Dosage: 150 MG
  2. BUPROPION HYDROCHLORIDE XL [Interacting]
     Active Substance: BUPROPION HYDROCHLORIDE
     Indication: Attention deficit hyperactivity disorder
     Dosage: 300 MG, QD
  3. ATOMOXETINE [Interacting]
     Active Substance: ATOMOXETINE
     Indication: Major depression
     Dosage: 40 MG
  4. ATOMOXETINE [Interacting]
     Active Substance: ATOMOXETINE
     Indication: Attention deficit hyperactivity disorder
     Dosage: 60 MG, QD
  5. ATOMOXETINE [Interacting]
     Active Substance: ATOMOXETINE
     Dosage: 40 MG, QD
  6. QUETIAPINE [Interacting]
     Active Substance: QUETIAPINE
     Indication: Insomnia
     Dosage: 100 MG, NIGHTY
  7. QUETIAPINE [Interacting]
     Active Substance: QUETIAPINE
     Dosage: 400 MG, BEDTIME
  8. QUETIAPINE [Interacting]
     Active Substance: QUETIAPINE
     Dosage: 200 MG, NIGHTLY
  9. ALPRAZOLAM [Concomitant]
     Active Substance: ALPRAZOLAM
     Indication: Anxiety
     Dosage: 0.25 MG

REACTIONS (26)
  - Psychotic disorder [Unknown]
  - Seizure [Recovered/Resolved]
  - Generalised tonic-clonic seizure [Recovered/Resolved]
  - Pressure of speech [Unknown]
  - Psychomotor hyperactivity [Unknown]
  - Confusional state [Recovered/Resolved]
  - Distractibility [Unknown]
  - Hallucination, visual [Unknown]
  - Hallucination, tactile [Unknown]
  - Formication [Recovered/Resolved]
  - Tongue biting [Recovered/Resolved]
  - Somnolence [Recovered/Resolved]
  - Disorientation [Recovered/Resolved]
  - Drooling [Recovered/Resolved]
  - Self-consciousness [Recovered/Resolved]
  - Disturbance in attention [Recovered/Resolved]
  - Tremor [Recovered/Resolved]
  - Leukocytosis [Recovered/Resolved]
  - Sinus tachycardia [Recovered/Resolved]
  - Restlessness [Unknown]
  - Insomnia [Unknown]
  - Thinking abnormal [Unknown]
  - Flight of ideas [Unknown]
  - Symptom recurrence [Unknown]
  - Drug interaction [Unknown]
  - Off label use [Unknown]
